FAERS Safety Report 14181764 (Version 1)
Quarter: 2017Q4

REPORT INFORMATION
  Report Type: Spontaneous
  Country: US (occurrence: US)
  Receive Date: 20171111
  Receipt Date: 20171111
  Transmission Date: 20180321
  Serious: Yes (Life-Threatening)
  Sender: FDA-Public Use
  Company Number: None

PATIENT
  Age: 26 Year
  Sex: Female
  Weight: 54 kg

DRUGS (1)
  1. ENSKYCE [Suspect]
     Active Substance: DESOGESTREL\ETHINYL ESTRADIOL
     Indication: CONTRACEPTION

REACTIONS (7)
  - Headache [None]
  - Feeling abnormal [None]
  - Apparent death [None]
  - Proctalgia [None]
  - Vomiting [None]
  - Abdominal pain [None]
  - Suicidal ideation [None]

NARRATIVE: CASE EVENT DATE: 20171110
